FAERS Safety Report 6142478-1 (Version None)
Quarter: 2009Q2

REPORT INFORMATION
  Report Type: 
  Country: None (occurrence: None)
  Receive Date: 20090403
  Receipt Date: 20090324
  Transmission Date: 20091009
  Serious: Yes (Hospitalization)
  Sender: FDA-Public Use
  Company Number: CA-PFIZER INC-2008035079

PATIENT

DRUGS (8)
  1. *PEMETREXED [Suspect]
     Indication: NON-SMALL CELL LUNG CANCER
     Dosage: 837.5 MG, EVERY 3 WEEKS
     Route: 042
     Dates: start: 20080208
  2. SUNITINIB MALATE [Suspect]
     Indication: NON-SMALL CELL LUNG CANCER
     Dosage: 25 MG, DAILY, SCHEDULE 2/1
     Route: 048
     Dates: start: 20080208
  3. ALLOPURINOL [Concomitant]
     Indication: GOUT
     Dates: start: 19880101
  4. MULTI-VITAMINS [Concomitant]
     Indication: VITAMIN SUPPLEMENTATION
     Dates: start: 20080104
  5. ENDOCET [Concomitant]
     Indication: PAIN
     Dates: start: 20070601
  6. METFORMIN HCL [Concomitant]
     Indication: DIABETES MELLITUS
     Dates: start: 20040101
  7. PRAVASTATIN [Concomitant]
     Indication: BLOOD CHOLESTEROL
     Dates: start: 19930101
  8. FOSINOPRIL [Concomitant]
     Indication: HYPERTENSION
     Dates: start: 19930101

REACTIONS (1)
  - GASTROENTERITIS [None]
